FAERS Safety Report 24867941 (Version 4)
Quarter: 2025Q2

REPORT INFORMATION
  Report Type: Spontaneous
  Country: AU (occurrence: AU)
  Receive Date: 20250121
  Receipt Date: 20250417
  Transmission Date: 20250716
  Serious: Yes (Other)
  Sender: TERSERA THERAPEUTICS
  Company Number: AU-AstraZeneca-CH-00783399A

PATIENT

DRUGS (2)
  1. GOSERELIN [Suspect]
     Active Substance: GOSERELIN
     Indication: Prostate cancer
     Route: 058
  2. ZOLADEX [Suspect]
     Active Substance: GOSERELIN ACETATE
     Indication: Prostate cancer
     Route: 065

REACTIONS (7)
  - Psoriatic arthropathy [Unknown]
  - Pneumonia [Unknown]
  - Heart rate irregular [Unknown]
  - Urinary incontinence [Unknown]
  - Dyspnoea [Unknown]
  - Dizziness [Unknown]
  - Incontinence [Recovered/Resolved]
